FAERS Safety Report 9778381 (Version 1)
Quarter: 2013Q4

REPORT INFORMATION
  Report Type: Spontaneous
  Country: US (occurrence: None)
  Receive Date: 20131220
  Receipt Date: 20131220
  Transmission Date: 20140711
  Serious: Yes (Life-Threatening, Hospitalization, Disabling)
  Sender: FDA-Public Use
  Company Number: None

PATIENT
  Age: 18 Year
  Sex: Female
  Weight: 49.9 kg

DRUGS (1)
  1. CELEXA [Suspect]
     Indication: DEPRESSION
     Dosage: YES ONCE DAILY TAKEN BY MOUTH
     Route: 048
     Dates: start: 20131206, end: 20131215

REACTIONS (5)
  - Screaming [None]
  - Fall [None]
  - Hallucination, auditory [None]
  - Sleep disorder [None]
  - Eating disorder [None]
